FAERS Safety Report 9976560 (Version 1)
Quarter: 2014Q1

REPORT INFORMATION
  Report Type: Report from Study
  Country: US (occurrence: US)
  Receive Date: 20140306
  Receipt Date: 20140306
  Transmission Date: 20141002
  Serious: No
  Sender: FDA-Public Use
  Company Number: US-ABBVIE-13P-163-1167502-00

PATIENT
  Sex: Female

DRUGS (9)
  1. HUMIRA [Suspect]
     Indication: CROHN^S DISEASE
     Dates: start: 20130813
  2. CELEXA [Concomitant]
     Indication: DEPRESSION
  3. LIALDA [Concomitant]
     Indication: COLITIS
     Dosage: 3 PILLS PER DAY
  4. PREDNISONE [Concomitant]
     Indication: COLITIS
     Dosage: MAINTAINANCE DOSE
  5. BEYAZ [Concomitant]
     Indication: CONTRACEPTION
     Dosage: PILL AT BEDTIME
  6. VALTREX [Concomitant]
     Indication: HERPES VIRUS INFECTION
  7. ONDANSETRON [Concomitant]
     Indication: NAUSEA
  8. ONDANSETRON [Concomitant]
     Indication: VOMITING
  9. ONDANSETRON [Concomitant]
     Indication: COLITIS

REACTIONS (1)
  - Drug dose omission [Not Recovered/Not Resolved]
